FAERS Safety Report 8838798 (Version 2)
Quarter: 2012Q4

REPORT INFORMATION
  Report Type: 
  Country: US (occurrence: US)
  Receive Date: 20121014
  Receipt Date: 20121026
  Transmission Date: 20130627
  Serious: Yes (Other)
  Sender: FDA-Public Use
  Company Number: US-TEVA-363581USA

PATIENT
  Sex: Female
  Weight: 62.2 kg

DRUGS (10)
  1. DOXAZOSIN [Suspect]
     Dosage: 4 Milligram Daily;
     Dates: start: 2002
  2. DOXAZOSIN [Suspect]
     Dosage: 4 Milligram Daily;
     Dates: start: 2000, end: 2012
  3. SUMATRIPTAN [Concomitant]
     Indication: MIGRAINE
     Dosage: as needed
  4. FIORINAL [Concomitant]
     Indication: MIGRAINE
     Dosage: as needed
  5. DILTIAZEM HYDROCHLORIDE [Concomitant]
     Indication: HYPERTENSION
     Dosage: 240 Milligram Daily;
  6. ALPRAZOLAM [Concomitant]
  7. DIAZEPAM [Concomitant]
     Dosage: as needed
  8. HYDROCHLOROTHIAZIDE [Concomitant]
  9. POTASSIUM CHLORIDE [Concomitant]
  10. TIZANIDINE HYDROCHLORIDE [Concomitant]

REACTIONS (2)
  - Hypertension [Unknown]
  - Hepatic enzyme increased [Unknown]
